FAERS Safety Report 12347975 (Version 2)
Quarter: 2016Q3

REPORT INFORMATION
  Report Type: Spontaneous
  Country: FR (occurrence: FR)
  Receive Date: 20160509
  Receipt Date: 20160712
  Transmission Date: 20161109
  Serious: Yes (Other)
  Sender: FDA-Public Use
  Company Number: FR-GILEAD-2016-0211357

PATIENT
  Sex: Female

DRUGS (2)
  1. DACLATASVIR. [Suspect]
     Active Substance: DACLATASVIR
     Indication: HEPATITIS C
     Dosage: UNK
     Route: 065
  2. SOFOSBUVIR [Suspect]
     Active Substance: SOFOSBUVIR
     Indication: HEPATITIS C
     Dosage: UNK
     Route: 065

REACTIONS (7)
  - Thrombocytopenia [Unknown]
  - Hepatitis C [Unknown]
  - Transaminases abnormal [Unknown]
  - Viral mutation identified [Unknown]
  - Alpha 1 foetoprotein abnormal [Unknown]
  - Drug ineffective [Unknown]
  - Blood bilirubin abnormal [Unknown]
